FAERS Safety Report 10523440 (Version 1)
Quarter: 2014Q4

REPORT INFORMATION
  Report Type: Spontaneous
  Country: US (occurrence: US)
  Receive Date: 20141016
  Receipt Date: 20141016
  Transmission Date: 20150528
  Serious: Yes (Death, Life-Threatening)
  Sender: FDA-Public Use
  Company Number: US-ROCHE-1474069

PATIENT
  Age: 24 Year
  Sex: Female

DRUGS (1)
  1. ZELBORAF [Suspect]
     Active Substance: VEMURAFENIB
     Indication: MALIGNANT MELANOMA STAGE IV
     Dosage: HAD BEEN DISCONTINUED
     Route: 065
     Dates: start: 2014

REACTIONS (9)
  - Death [Fatal]
  - Acne [Unknown]
  - Alopecia [Unknown]
  - Weight decreased [Unknown]
  - Radiation injury [Unknown]
  - Drug ineffective [Unknown]
  - Malnutrition [Unknown]
  - Fatigue [Unknown]
  - Nausea [Unknown]

NARRATIVE: CASE EVENT DATE: 201409
